FAERS Safety Report 24767576 (Version 2)
Quarter: 2025Q1

REPORT INFORMATION
  Report Type: Spontaneous
  Country: US (occurrence: US)
  Receive Date: 20241223
  Receipt Date: 20250220
  Transmission Date: 20250409
  Serious: No
  Sender: NOVARTIS
  Company Number: US-002147023-NVSC2024US243013

PATIENT
  Sex: Male

DRUGS (1)
  1. MEKINIST [Suspect]
     Active Substance: TRAMETINIB DIMETHYL SULFOXIDE
     Indication: Langerhans^ cell histiocytosis
     Dosage: 0.5 MG, QD
     Route: 048
     Dates: start: 202405

REACTIONS (4)
  - Illness [Unknown]
  - Product storage error [Unknown]
  - Rash [Unknown]
  - Off label use [Unknown]
